FAERS Safety Report 10252812 (Version 2)
Quarter: 2014Q3

REPORT INFORMATION
  Report Type: Spontaneous
  Country: US (occurrence: US)
  Receive Date: 20140623
  Receipt Date: 20140721
  Transmission Date: 20150326
  Serious: Yes (Other)
  Sender: FDA-Public Use
  Company Number: US-PFIZER INC-2014168876

PATIENT
  Age: 53 Year
  Sex: Female
  Weight: 63.49 kg

DRUGS (2)
  1. XELJANZ [Suspect]
     Active Substance: TOFACITINIB CITRATE
     Indication: RHEUMATOID ARTHRITIS
     Dosage: 2X/DAY
     Dates: start: 201303
  2. TOPIRAMATE. [Concomitant]
     Active Substance: TOPIRAMATE
     Indication: CONVULSION
     Dosage: 2X/DAY

REACTIONS (1)
  - Rheumatoid arthritis [Recovered/Resolved]

NARRATIVE: CASE EVENT DATE: 201403
